FAERS Safety Report 19419252 (Version 1)
Quarter: 2021Q2

REPORT INFORMATION
  Report Type: Spontaneous
  Country: US (occurrence: US)
  Receive Date: 20210615
  Receipt Date: 20210615
  Transmission Date: 20210717
  Serious: No
  Sender: FDA-Public Use
  Company Number: US-KINDEVA DRUG DELIVERY L.P.-2112746

PATIENT
  Sex: Female
  Weight: 138.64 kg

DRUGS (13)
  1. COSENTYX [Suspect]
     Active Substance: SECUKINUMAB
     Dates: start: 20210514
  2. TOPICAL CORTICOSTEROIDS [Suspect]
     Active Substance: UNSPECIFIED INGREDIENT
  3. COSENTYX [Suspect]
     Active Substance: SECUKINUMAB
     Dates: start: 20201104, end: 20201227
  4. NSAIDS [Suspect]
     Active Substance: UNSPECIFIED INGREDIENT
  5. ANTIHYPERTENSIVE MEDICATION [Suspect]
     Active Substance: UNSPECIFIED INGREDIENT
  6. SEROQUEL [Suspect]
     Active Substance: QUETIAPINE FUMARATE
  7. DICYCLOMINE [Suspect]
     Active Substance: DICYCLOMINE HYDROCHLORIDE
  8. ALBUTEROL SULFATE. [Suspect]
     Active Substance: ALBUTEROL SULFATE
     Route: 055
  9. ADVAIR DISKUS [Suspect]
     Active Substance: FLUTICASONE PROPIONATE\SALMETEROL XINAFOATE
  10. DULOXETINE. [Suspect]
     Active Substance: DULOXETINE
  11. TOPIRAMATE. [Suspect]
     Active Substance: TOPIRAMATE
  12. QWS [Suspect]
     Active Substance: UNSPECIFIED INGREDIENT
  13. FUROSEMIDE. [Suspect]
     Active Substance: FUROSEMIDE

REACTIONS (1)
  - Infection [None]
